FAERS Safety Report 7784797-9 (Version None)
Quarter: 2011Q3

REPORT INFORMATION
  Report Type: 
  Country: None (occurrence: None)
  Receive Date: 20110928
  Receipt Date: 20110923
  Transmission Date: 20111222
  Serious: Yes (Hospitalization)
  Sender: FDA-Public Use
  Company Number: GR-PFIZER INC-2011210842

PATIENT
  Age: 55 Year
  Sex: Female

DRUGS (8)
  1. AMLODIPINE BESYLATE [Suspect]
     Dosage: 15MG DAILY
     Dates: start: 20110321
  2. PAROXETINE HCL [Suspect]
     Dosage: 10MG DAILY
     Dates: start: 20060101
  3. METHOTREXATE SODIUM [Suspect]
     Indication: RHEUMATOID ARTHRITIS
     Dosage: UNK
     Route: 048
     Dates: start: 20100202, end: 20110511
  4. HYDROCHLOROTHIAZIDE [Suspect]
     Dosage: 12.5MG DAILY
     Dates: start: 20110321
  5. ATORVASTATIN CALCIUM [Suspect]
     Dosage: 40MG DAILY
     Dates: start: 20100726
  6. TOCILIZUMAB [Suspect]
     Indication: RHEUMATOID ARTHRITIS
     Dosage: 584 MG, EVERY 28 DAYS
     Route: 042
     Dates: start: 20100202, end: 20110514
  7. ALPRAZOLAM [Suspect]
     Dosage: 0.25 MG, UNK
     Dates: start: 20060101
  8. VALSARTAN [Suspect]
     Dosage: 160MG TOTAL DAILY DOSE
     Dates: start: 20110321

REACTIONS (1)
  - PLEURISY [None]
